FAERS Safety Report 7141327-2 (Version None)
Quarter: 2010Q4

REPORT INFORMATION
  Report Type: 
  Country: None (occurrence: None)
  Receive Date: 20101203
  Receipt Date: 20101203
  Transmission Date: 20110411
  Serious: Yes (Hospitalization)
  Sender: FDA-Public Use
  Company Number: None

PATIENT
  Sex: Female
  Weight: 123.18 kg

DRUGS (2)
  1. CISPLATIN [Suspect]
     Dosage: 100 MG
  2. ALIMTA [Suspect]
     Dosage: 1000 MG

REACTIONS (3)
  - ANAEMIA [None]
  - FEBRILE NEUTROPENIA [None]
  - URINARY TRACT INFECTION [None]
